FAERS Safety Report 7966906 (Version 3)
Quarter: 2013Q2

REPORT INFORMATION
  Report Type: Spontaneous
  Country: US (occurrence: US)
  Receive Date: 20110531
  Receipt Date: 20130522
  Transmission Date: 20140414
  Serious: Yes (Other)
  Sender: FDA-Public Use
  Company Number: US-ROCHE-778620

PATIENT
  Age: 15 Year
  Sex: Male
  Weight: 70.37 kg

DRUGS (14)
  1. ACCUTANE [Suspect]
     Indication: ACNE CYSTIC
     Route: 048
  2. ACCUTANE [Suspect]
     Route: 048
  3. ACCUTANE [Suspect]
     Route: 048
     Dates: start: 20000518, end: 20011121
  4. PREVACID [Concomitant]
     Indication: GASTROOESOPHAGEAL REFLUX DISEASE
  5. PREDNISONE [Concomitant]
     Route: 065
     Dates: start: 20000104
  6. PREDNISONE [Concomitant]
     Route: 065
     Dates: start: 20000518
  7. PREDNISONE [Concomitant]
     Route: 065
     Dates: start: 20000616
  8. PREDNISONE [Concomitant]
     Route: 065
     Dates: start: 20000716
  9. PREDNISONE [Concomitant]
     Route: 065
     Dates: start: 20010129
  10. PREDNISONE [Concomitant]
     Route: 065
     Dates: start: 20010307
  11. PREDNISONE [Concomitant]
     Route: 065
     Dates: start: 20020103
  12. PREDNISONE [Concomitant]
     Route: 065
     Dates: start: 20020210
  13. PREDNISONE [Concomitant]
     Route: 065
     Dates: start: 20020310
  14. MINOCYCLINE [Concomitant]
     Indication: ACNE

REACTIONS (4)
  - Irritable bowel syndrome [Unknown]
  - Depression [Unknown]
  - Epistaxis [Unknown]
  - Dry skin [Unknown]
